FAERS Safety Report 14996160 (Version 1)
Quarter: 2018Q2

REPORT INFORMATION
  Report Type: Spontaneous
  Country: CN (occurrence: CN)
  Receive Date: 20180611
  Receipt Date: 20180611
  Transmission Date: 20180711
  Serious: Yes (Other)
  Sender: FDA-Public Use
  Company Number: CN-MYLANLABS-2018M1038786

PATIENT
  Age: 67 Year
  Sex: Female

DRUGS (3)
  1. GM1 VASCULAR [Suspect]
     Active Substance: GANGLIOSIDE GM1
     Indication: PRODUCT USED FOR UNKNOWN INDICATION
     Dosage: 100 MG OF 2 ML:20 MG; RECEIVED 50 ML OF THE SOLUTION
     Route: 041
  2. SODIUM CHLORIDE. [Concomitant]
     Active Substance: SODIUM CHLORIDE
     Indication: PRODUCT USED FOR UNKNOWN INDICATION
     Dosage: 500 ML; RECEIVED 50 ML OF THE SOLUTION
     Route: 041
  3. POTASSIUM CHLORIDE. [Suspect]
     Active Substance: POTASSIUM CHLORIDE
     Indication: PRODUCT USED FOR UNKNOWN INDICATION
     Dosage: 1.5 [UNIT NOT STATED]; RECEIVED 50 ML OF THE SOLUTION
     Route: 041

REACTIONS (7)
  - Hypersensitivity [Recovering/Resolving]
  - Palpitations [Recovering/Resolving]
  - Pallor [Recovering/Resolving]
  - Dyspnoea [Recovering/Resolving]
  - Chills [Recovering/Resolving]
  - Chest discomfort [Recovering/Resolving]
  - Dizziness [Recovering/Resolving]
